FAERS Safety Report 11713582 (Version 1)
Quarter: 2015Q4

REPORT INFORMATION
  Report Type: Spontaneous
  Country: US (occurrence: US)
  Receive Date: 20151109
  Receipt Date: 20151109
  Transmission Date: 20160304
  Serious: Yes (Other)
  Sender: FDA-Public Use
  Company Number: US-BEH-2015055470

PATIENT
  Sex: Female
  Weight: 108 kg

DRUGS (19)
  1. VENTOLIN [Concomitant]
     Active Substance: ALBUTEROL SULFATE
  2. EPIPEN [Concomitant]
     Active Substance: EPINEPHRINE
  3. ACETAMINOPHEN. [Concomitant]
     Active Substance: ACETAMINOPHEN
  4. FLONASE [Concomitant]
     Active Substance: FLUTICASONE PROPIONATE
  5. AMOX-TR-K [Concomitant]
  6. TRAZODONE [Concomitant]
     Active Substance: TRAZODONE HYDROCHLORIDE
  7. CYMBALTA [Concomitant]
     Active Substance: DULOXETINE HYDROCHLORIDE
  8. ZYRTEC [Concomitant]
     Active Substance: CETIRIZINE HYDROCHLORIDE
  9. ASPIRIN. [Concomitant]
     Active Substance: ASPIRIN
  10. SINGULAIR [Concomitant]
     Active Substance: MONTELUKAST SODIUM
  11. BENZONATATE. [Concomitant]
     Active Substance: BENZONATATE
  12. BENADRYL [Concomitant]
     Active Substance: DIPHENHYDRAMINE HYDROCHLORIDE
  13. LMX [Concomitant]
     Active Substance: LIDOCAINE
  14. QVAR [Concomitant]
     Active Substance: BECLOMETHASONE DIPROPIONATE
  15. SIMVASTATIN. [Concomitant]
     Active Substance: SIMVASTATIN
  16. LIDOCAINE. [Concomitant]
     Active Substance: LIDOCAINE
  17. HIZENTRA [Suspect]
     Active Substance: HUMAN IMMUNOGLOBULIN G
     Indication: IMMUNODEFICIENCY
     Route: 058
     Dates: start: 20150403
  18. DIPHENHYDRAMINE. [Concomitant]
     Active Substance: DIPHENHYDRAMINE
  19. CYANOCOBALAMIN. [Concomitant]
     Active Substance: CYANOCOBALAMIN

REACTIONS (1)
  - Pneumonia [Unknown]
